FAERS Safety Report 17242423 (Version 3)
Quarter: 2020Q1

REPORT INFORMATION
  Report Type: Report from Study
  Country: CA (occurrence: CA)
  Receive Date: 20200107
  Receipt Date: 20200210
  Transmission Date: 20200409
  Serious: Yes (Other)
  Sender: FDA-Public Use
  Company Number: CA-EMD SERONO-9138649

PATIENT
  Sex: Male
  Weight: 96 kg

DRUGS (6)
  1. DULOXETINE. [Concomitant]
     Active Substance: DULOXETINE
     Indication: PRODUCT USED FOR UNKNOWN INDICATION
     Dosage: AS NEEDED
  2. OXYCODONE [Concomitant]
     Active Substance: OXYCODONE
     Indication: PRODUCT USED FOR UNKNOWN INDICATION
     Dosage: AS NEEDED
  3. MAVENCLAD [Suspect]
     Active Substance: CLADRIBINE
     Dosage: FIRST YEAR SECOND WEEK THERAPY
     Route: 048
     Dates: start: 20180611, end: 20180615
  4. MAVENCLAD [Suspect]
     Active Substance: CLADRIBINE
     Dosage: SECOND YEAR FIRST WEEK THERAPY
     Route: 048
     Dates: start: 20190617, end: 20190621
  5. MAVENCLAD [Suspect]
     Active Substance: CLADRIBINE
     Indication: MULTIPLE SCLEROSIS
     Dosage: FIRST YEAR FIRST WEEK THERAPY
     Route: 048
     Dates: start: 20180514, end: 20180518
  6. MAVENCLAD [Suspect]
     Active Substance: CLADRIBINE
     Dosage: SECOND YEAR FIRST WEEK THERAPY
     Route: 048
     Dates: start: 20190715, end: 20190719

REACTIONS (9)
  - White blood cell count decreased [Recovered/Resolved]
  - Lymphocyte count decreased [Not Recovered/Not Resolved]
  - Gastrooesophageal reflux disease [Unknown]
  - Hepatic steatosis [Unknown]
  - Abdominal pain lower [Unknown]
  - Type 2 diabetes mellitus [Not Recovered/Not Resolved]
  - Diverticulum intestinal [Unknown]
  - Prostatomegaly [Unknown]
  - Renal cyst [Unknown]
